FAERS Safety Report 7362347-9 (Version None)
Quarter: 2011Q1

REPORT INFORMATION
  Report Type: 
  Country: None (occurrence: None)
  Receive Date: 20110318
  Receipt Date: 20110314
  Transmission Date: 20110831
  Serious: Yes (Life-Threatening, Other)
  Sender: FDA-Public Use
  Company Number: AU-B.I. PHARMACEUTICALS,INC./RIDGEFIELD-2011-AU-00065AU

PATIENT
  Sex: Male
  Weight: 90 kg

DRUGS (7)
  1. MULTI B FORTE [Concomitant]
     Dosage: 2 TABLETS DAILY
     Route: 048
  2. MOBIC [Suspect]
     Indication: BONE PAIN
     Dosage: 15 MG
     Route: 048
     Dates: start: 20101213, end: 20110208
  3. WARFARIN SODIUM [Concomitant]
     Dosage: 1 MG AND 5 MG AS DIRECTED
     Route: 048
  4. COSUDEX [Concomitant]
     Dosage: 50 MG
     Route: 048
  5. ATENOLOL [Suspect]
     Dates: end: 20110215
  6. ARICEPT [Concomitant]
     Dosage: 10 MG
     Route: 048
  7. ZOLADEX [Concomitant]
     Dosage: 1 IMPLANT EVERY 3 MONTHS

REACTIONS (1)
  - CARDIAC FAILURE [None]
